FAERS Safety Report 16430723 (Version 1)
Quarter: 2019Q2

REPORT INFORMATION
  Report Type: Spontaneous
  Country: JP (occurrence: JP)
  Receive Date: 20190614
  Receipt Date: 20190614
  Transmission Date: 20190711
  Serious: Yes (Other)
  Sender: FDA-Public Use
  Company Number: PHJP2019JP006671

PATIENT
  Age: 79 Year
  Sex: Female

DRUGS (4)
  1. IMATINIB TAB [Suspect]
     Active Substance: IMATINIB
     Indication: CHRONIC MYELOID LEUKAEMIA
     Dosage: 400 MG, QD
     Route: 065
     Dates: start: 201411, end: 201602
  2. NILOTINIB [Suspect]
     Active Substance: NILOTINIB
     Indication: CHRONIC MYELOID LEUKAEMIA
     Dosage: 800 MG, QD
     Route: 065
     Dates: start: 201602, end: 201606
  3. NILOTINIB [Suspect]
     Active Substance: NILOTINIB
     Dosage: 600 MG, QD
     Route: 065
     Dates: start: 201606
  4. DASATINIB. [Suspect]
     Active Substance: DASATINIB
     Indication: CHRONIC MYELOID LEUKAEMIA
     Dosage: 100 MG, QD
     Route: 065

REACTIONS (3)
  - Atrial fibrillation [Unknown]
  - Rash [Unknown]
  - Electrocardiogram QT prolonged [Unknown]
